FAERS Safety Report 15518540 (Version 1)
Quarter: 2018Q4

REPORT INFORMATION
  Report Type: Report from Study
  Country: FR (occurrence: FR)
  Receive Date: 20181017
  Receipt Date: 20181017
  Transmission Date: 20190205
  Serious: Yes (Hospitalization)
  Sender: FDA-Public Use
  Company Number: FR-ASTRAZENECA-2018SE68727

PATIENT
  Age: 80 Year
  Sex: Female

DRUGS (2)
  1. BEVACIZUMAB. [Suspect]
     Active Substance: BEVACIZUMAB
     Indication: CERVIX CARCINOMA
     Dosage: DATE OF LAST DOSE PRIOR TO EVENT ONSET : 19/APR/2018
     Route: 065
     Dates: start: 20170529, end: 20180509
  2. OLAPARIB. [Suspect]
     Active Substance: OLAPARIB
     Indication: CERVIX CARCINOMA
     Route: 048
     Dates: start: 20170901, end: 20180509

REACTIONS (2)
  - Pulmonary embolism [Recovered/Resolved]
  - Lung infection [Recovered/Resolved with Sequelae]

NARRATIVE: CASE EVENT DATE: 20180509
